FAERS Safety Report 24935225 (Version 1)
Quarter: 2025Q1

REPORT INFORMATION
  Report Type: Spontaneous
  Country: FR (occurrence: FR)
  Receive Date: 20250206
  Receipt Date: 20250206
  Transmission Date: 20250409
  Serious: Yes (Other)
  Sender: AUROBINDO
  Company Number: FR-AFSSAPS-MP2025000074

PATIENT
  Age: 89 Year
  Sex: Female

DRUGS (2)
  1. OXAZEPAM [Suspect]
     Active Substance: OXAZEPAM
     Indication: Anxiety
     Dosage: 1 MILLIGRAM, ONCE A DAY
     Route: 048
     Dates: start: 20241231, end: 20250110
  2. PREDNISONE [Suspect]
     Active Substance: PREDNISONE
     Indication: Nephrotic syndrome
     Dosage: 40 MILLIGRAM, ONCE A DAY
     Route: 048
     Dates: start: 202411

REACTIONS (4)
  - Delirium [Recovering/Resolving]
  - Disorientation [Recovering/Resolving]
  - Hypomania [Recovering/Resolving]
  - Paradoxical drug reaction [Recovering/Resolving]

NARRATIVE: CASE EVENT DATE: 20250103
